FAERS Safety Report 8401496 (Version 3)
Quarter: 2012Q4

REPORT INFORMATION
  Report Type: 
  Country: DE (occurrence: DE)
  Receive Date: 20120210
  Receipt Date: 20121206
  Transmission Date: 20130627
  Serious: Yes (Hospitalization, Other)
  Sender: FDA-Public Use
  Company Number: PHHO2010DE020165

PATIENT
  Age: 42 Year
  Sex: Male
  Weight: 83.3 kg

DRUGS (16)
  1. FTY [Suspect]
     Indication: MULTIPLE SCLEROSIS
     Dosage: 1.25mg
     Route: 048
     Dates: start: 20080912, end: 20081113
  2. FTY [Suspect]
     Dosage: NO TREATMENT
     Dates: start: 20081114, end: 20090607
  3. FTY [Suspect]
     Dosage: 1.25 mg
     Route: 048
     Dates: start: 20090608
  4. FTY [Suspect]
     Dosage: 0.5 mg
     Route: 048
     Dates: start: 20100325, end: 20100414
  5. RIOPAN [Concomitant]
     Indication: DYSPEPSIA
  6. MAGALDRATE [Concomitant]
     Indication: DYSPEPSIA
     Dosage: UNK
     Dates: start: 20100414, end: 20100415
  7. SODIUM CARBONATE [Concomitant]
     Indication: DYSPEPSIA
     Dosage: UNK
     Dates: start: 20100411, end: 20100413
  8. HERBAL OIL NOS [Concomitant]
     Dosage: UNK
  9. IBUPROFEN [Concomitant]
  10. MEPIVACAINE [Concomitant]
     Indication: LOCAL ANAESTHESIA
  11. MAGNESIUM [Concomitant]
     Indication: SUPPLEMENTATION THERAPY
  12. AMANTADINE HYDROCHLORIDE [Concomitant]
     Indication: FATIGUE
  13. HEPARIN-FRACTION, CALCIUM SALT [Concomitant]
     Indication: THROMBOSIS PROPHYLAXIS
  14. RANITIDINE [Concomitant]
     Indication: GASTRITIS PROPHYLAXIS
  15. HOMEOPATHIC PREPARATIONS [Concomitant]
     Indication: PROPHYLAXIS
     Dosage: UNK
  16. INFLUENZA VIRUS VACCINE [Concomitant]
     Indication: PROPHYLAXIS

REACTIONS (14)
  - Pain in extremity [Unknown]
  - Splenomegaly [Unknown]
  - Jaundice [Recovered/Resolved]
  - Alpha-1 anti-trypsin decreased [Unknown]
  - Hepatitis E [Recovered/Resolved]
  - Influenza like illness [Recovered/Resolved]
  - Decreased appetite [Recovered/Resolved]
  - Faeces pale [Recovered/Resolved]
  - Chromaturia [Recovered/Resolved]
  - Epigastric discomfort [Recovered/Resolved]
  - Abdominal pain [Recovered/Resolved]
  - Yellow skin [Recovered/Resolved]
  - Fatigue [Recovered/Resolved]
  - Hepatic enzyme increased [Recovered/Resolved]
